FAERS Safety Report 9049773 (Version 1)
Quarter: 2013Q1

REPORT INFORMATION
  Report Type: Spontaneous
  Country: US (occurrence: US)
  Receive Date: 20130205
  Receipt Date: 20130205
  Transmission Date: 20140127
  Serious: No
  Sender: FDA-Public Use
  Company Number: US-BAYER-2013-013933

PATIENT
  Age: 75 Year
  Sex: Male
  Weight: 70 kg

DRUGS (9)
  1. ALEVE GELCAP [Suspect]
     Dosage: 2 DF, QD
     Route: 048
     Dates: start: 2012, end: 20130122
  2. PSYLLIUM HUSK [Concomitant]
     Indication: ISCHAEMIC HEART DISEASE PROPHYLAXIS
  3. AMLODIPINE [Concomitant]
  4. TERAZOSIN [Concomitant]
  5. FINASTERIDE [Concomitant]
  6. HERB FOR PROSTATE HEALTH [Concomitant]
  7. VITAMINS [Concomitant]
     Indication: VITAMIN SUPPLEMENTATION
  8. FISH OIL [Concomitant]
     Indication: VITAMIN SUPPLEMENTATION
  9. BAYER ASPIRIN REGIMEN ADULT LOW STRENGTH [Concomitant]
     Indication: ISCHAEMIC HEART DISEASE PROPHYLAXIS

REACTIONS (1)
  - Incorrect drug administration duration [Recovered/Resolved]
